FAERS Safety Report 23985557 (Version 3)
Quarter: 2024Q4

REPORT INFORMATION
  Report Type: Spontaneous
  Country: US (occurrence: US)
  Receive Date: 20240618
  Receipt Date: 20241122
  Transmission Date: 20250114
  Serious: Yes (Other)
  Sender: MYLAN
  Company Number: US-MYLANLABS-2024M1053357

PATIENT
  Sex: Male

DRUGS (1)
  1. BREYNA [Suspect]
     Active Substance: BUDESONIDE\FORMOTEROL FUMARATE
     Indication: Product used for unknown indication
     Dosage: UNK
     Route: 055

REACTIONS (6)
  - Pneumonia [Unknown]
  - Viral infection [Unknown]
  - Therapeutic product effect decreased [Unknown]
  - Therapeutic response changed [Unknown]
  - Product substitution issue [Unknown]
  - Device delivery system issue [Unknown]
